FAERS Safety Report 8153643-6 (Version None)
Quarter: 2012Q1

REPORT INFORMATION
  Report Type: 
  Country: None (occurrence: None)
  Receive Date: 20120221
  Receipt Date: 20120206
  Transmission Date: 20120608
  Serious: Yes (Other)
  Sender: FDA-Public Use
  Company Number: IN-WATSON-2012-02360

PATIENT
  Age: 50 Year
  Sex: Female

DRUGS (2)
  1. METRONIDAZOLE [Suspect]
     Indication: DIARRHOEA
     Dosage: UNK
     Route: 065
  2. TINIDAZOLE [Suspect]
     Indication: DIARRHOEA

REACTIONS (4)
  - NEUROPATHY PERIPHERAL [None]
  - TOXIC ENCEPHALOPATHY [None]
  - SELF-MEDICATION [None]
  - MEDICATION ERROR [None]
